FAERS Safety Report 17914738 (Version 1)
Quarter: 2020Q2

REPORT INFORMATION
  Report Type: Other
  Country: IT (occurrence: IT)
  Receive Date: 20200619
  Receipt Date: 20200619
  Transmission Date: 20200714
  Serious: Yes (Hospitalization)
  Sender: FDA-Public Use
  Company Number: IT-CELLTRION INC.-2020IT023355

PATIENT

DRUGS (9)
  1. DIBASE [Concomitant]
     Active Substance: CHOLECALCIFEROL
     Dosage: ONGOING = CHECKED
     Dates: start: 20190115
  2. TAXOTERE [Suspect]
     Active Substance: DOCETAXEL
     Indication: BREAST CANCER
     Dosage: 75 MG/M2 EVERY 3 WEEKS
     Route: 042
     Dates: start: 20180817, end: 20181206
  3. RAMIPRIL. [Concomitant]
     Active Substance: RAMIPRIL
     Indication: VENTRICULAR HYPOKINESIA
     Dosage: ONGOING = CHECKED
     Dates: start: 20190423
  4. PARACETAMOLO [Concomitant]
     Active Substance: ACETAMINOPHEN
     Dosage: ONGOING = CHECKED
     Dates: start: 20190822
  5. TRASTUZUMAB (UNKNOWN) [Suspect]
     Active Substance: TRASTUZUMAB
     Indication: BREAST CANCER
     Dosage: 480MG EVERY 3 WEEKS (MOST RECENT DOSE PRIOR TO THE EVENT: 22/AUG/2019)
     Route: 042
     Dates: start: 20180817, end: 20180817
  6. ARIMIDEX [Suspect]
     Active Substance: ANASTROZOLE
     Indication: BREAST CANCER
     Dosage: O.D. - ONCE DAILY
     Route: 048
     Dates: start: 20190115
  7. PERTUZUMAB. [Suspect]
     Active Substance: PERTUZUMAB
     Indication: BREAST CANCER
     Dosage: 840MG EVERY 3 WEEKS (MOST RECENT DOSE PRIOR TO THE EVENT: 23/AUG/2019)
     Route: 042
     Dates: start: 20180816, end: 20180816
  8. BISOPROLOLO [Concomitant]
     Active Substance: BISOPROLOL FUMARATE
     Dosage: ONGOING = CHECKED
     Dates: start: 20191114
  9. CLORFENAMINA MALEATO [Concomitant]
     Dosage: ONGOING = CHECKED
     Dates: start: 20190822

REACTIONS (1)
  - Jaundice cholestatic [Not Recovered/Not Resolved]

NARRATIVE: CASE EVENT DATE: 20200604
